FAERS Safety Report 4721882-X (Version None)
Quarter: 2005Q3

REPORT INFORMATION
  Report Type: 
  Country: None (occurrence: None)
  Receive Date: 20050721
  Receipt Date: 20050524
  Transmission Date: 20060218
  Serious: Yes (Other)
  Sender: FDA-Public Use
  Company Number: US-BRISTOL-MYERS SQUIBB COMPANY-12980439

PATIENT
  Age: 58 Year
  Sex: Male
  Weight: 100 kg

DRUGS (4)
  1. COUMADIN [Suspect]
     Indication: ATRIAL FIBRILLATION
     Dosage: ONGOING 5-6 MONTHS
     Dates: end: 20050523
  2. SOTALOL HCL [Concomitant]
  3. LIPITOR [Concomitant]
  4. VALIUM [Concomitant]

REACTIONS (1)
  - INTERNATIONAL NORMALISED RATIO INCREASED [None]
